FAERS Safety Report 7817524-7 (Version None)
Quarter: 2011Q4

REPORT INFORMATION
  Report Type: 
  Country: None (occurrence: None)
  Receive Date: 20111017
  Receipt Date: 20111004
  Transmission Date: 20120403
  Serious: Yes (Hospitalization, Other)
  Sender: FDA-Public Use
  Company Number: US-JNJFOC-20041002694

PATIENT
  Sex: Male
  Weight: 90 kg

DRUGS (3)
  1. REMICADE [Suspect]
     Indication: UVEITIS
     Route: 042
     Dates: start: 20040811
  2. REMICADE [Suspect]
     Route: 042
     Dates: start: 20031201
  3. METHOTREXATE [Concomitant]

REACTIONS (1)
  - HISTOPLASMOSIS DISSEMINATED [None]
